FAERS Safety Report 21388716 (Version 1)
Quarter: 2022Q3

REPORT INFORMATION
  Report Type: Spontaneous
  Country: US (occurrence: None)
  Receive Date: 20220927
  Receipt Date: 20220927
  Transmission Date: 20221027
  Serious: Yes (Hospitalization)
  Sender: FDA-Public Use
  Company Number: None

PATIENT
  Sex: Female
  Weight: 45.1 kg

DRUGS (1)
  1. PEMBROLIZUMAB [Suspect]
     Active Substance: PEMBROLIZUMAB
     Dates: end: 20220728

REACTIONS (13)
  - Hypotension [None]
  - Fatigue [None]
  - Asthenia [None]
  - Cough [None]
  - Dyspnoea [None]
  - Atelectasis [None]
  - Pneumonia [None]
  - Fibrin D dimer increased [None]
  - Hyponatraemia [None]
  - Anaemia [None]
  - Urinary tract infection [None]
  - Hypoalbuminaemia [None]
  - Liver function test increased [None]

NARRATIVE: CASE EVENT DATE: 20220815
